FAERS Safety Report 8555782-4 (Version None)
Quarter: 2012Q3

REPORT INFORMATION
  Report Type: 
  Country: None (occurrence: None)
  Receive Date: 20120801
  Receipt Date: 20120720
  Transmission Date: 20120928
  Serious: Yes (Hospitalization, Other)
  Sender: FDA-Public Use
  Company Number: FR-BIOGENIDEC-2012BI018628

PATIENT
  Age: 52 Year
  Sex: Male

DRUGS (6)
  1. TROSPIUM CHLORIDE [Concomitant]
     Route: 048
  2. COLCHICINE [Concomitant]
     Indication: CHONDROCALCINOSIS
     Route: 048
  3. ACETAMINOPHEN [Concomitant]
     Route: 048
  4. AVONEX [Suspect]
     Indication: MULTIPLE SCLEROSIS
     Route: 030
     Dates: start: 20080101
  5. TAMSULOSIN HCL [Concomitant]
     Route: 048
  6. GABAPENTIN [Concomitant]
     Route: 048

REACTIONS (2)
  - MICROCYTIC ANAEMIA [None]
  - POLYARTHRITIS [None]
